FAERS Safety Report 9007115 (Version 1)
Quarter: 2013Q1

REPORT INFORMATION
  Report Type: Spontaneous
  Country: TW (occurrence: TW)
  Receive Date: 20130110
  Receipt Date: 20130110
  Transmission Date: 20140127
  Serious: Yes (Hospitalization, Other)
  Sender: FDA-Public Use
  Company Number: PHHY2013TW001623

PATIENT
  Age: 62 Year
  Sex: Female

DRUGS (5)
  1. ARIPIPRAZOLE [Suspect]
     Indication: DEPRESSION
     Dosage: 5 MG, EVERY OTHER DAY
  2. ARIPIPRAZOLE [Interacting]
     Dosage: 2.5 MG, EVERY OTHER DAY
  3. ARIPIPRAZOLE [Interacting]
     Dosage: 1.875  MG, EVERY OTHER DAY
  4. FLUOXETINE [Interacting]
     Indication: DEPRESSION
     Dosage: 40 MG, UNK
  5. FLUOXETINE [Interacting]
     Dosage: 60 MG, UNK

REACTIONS (8)
  - Hypomania [Recovered/Resolved]
  - Inappropriate affect [Recovered/Resolved]
  - Sleep disorder [Recovered/Resolved]
  - Tachyphrenia [Recovered/Resolved]
  - Impulsive behaviour [Recovered/Resolved]
  - Middle insomnia [Recovered/Resolved]
  - Suicidal ideation [Recovered/Resolved]
  - Drug interaction [Unknown]
